FAERS Safety Report 19979033 (Version 1)
Quarter: 2021Q4

REPORT INFORMATION
  Report Type: Spontaneous
  Country: US (occurrence: US)
  Receive Date: 20211020
  Receipt Date: 20211020
  Transmission Date: 20220304
  Serious: Yes (Death, Other)
  Sender: FDA-Public Use
  Company Number: US-SAGENT PHARMACEUTICALS-2021SAG002310

PATIENT

DRUGS (6)
  1. FLUDARABINE PHOSPHATE [Suspect]
     Active Substance: FLUDARABINE PHOSPHATE
     Indication: Myelofibrosis
     Dosage: 25 MG/M2, QD, DAY -9 TO DAY -5
  2. MELPHALAN HYDROCHLORIDE [Suspect]
     Active Substance: MELPHALAN HYDROCHLORIDE
     Indication: Myelofibrosis
     Dosage: 140 MG/M2, ONCE, ON DAY -4
  3. RUXOLITINIB [Suspect]
     Active Substance: RUXOLITINIB
     Indication: Myelofibrosis
     Dosage: UNK
  4. TACROLIMUS [Suspect]
     Active Substance: TACROLIMUS
     Indication: Prophylaxis against graft versus host disease
     Dosage: 0.02 MG/KG, QD
     Route: 042
  5. SIROLIMUS [Suspect]
     Active Substance: SIROLIMUS
     Indication: Prophylaxis against graft versus host disease
     Dosage: 12 MG, ONCE, ON DAY -3
     Route: 048
  6. SIROLIMUS [Suspect]
     Active Substance: SIROLIMUS
     Dosage: 4 MG, QD, IN MORNING
     Route: 048

REACTIONS (3)
  - Respiratory failure [Fatal]
  - Cardiac arrest [Recovered/Resolved]
  - Mucosal inflammation [Recovered/Resolved]
